FAERS Safety Report 4837500-6 (Version None)
Quarter: 2005Q4

REPORT INFORMATION
  Report Type: 
  Country: None (occurrence: None)
  Receive Date: 20051128
  Receipt Date: 20051117
  Transmission Date: 20060501
  Serious: Yes (Other)
  Sender: FDA-Public Use
  Company Number: 2000/02

PATIENT
  Age: 43 Year
  Sex: Female
  Weight: 57 kg

DRUGS (2)
  1. AMOXICILLINE RPG [Suspect]
     Dosage: 2G SINGLE DOSE
     Route: 048
  2. NORDETTE-21 [Concomitant]
     Route: 048

REACTIONS (8)
  - ABDOMINAL PAIN UPPER [None]
  - ANAPHYLACTIC SHOCK [None]
  - CHEST PAIN [None]
  - CHILLS [None]
  - HOT FLUSH [None]
  - OEDEMA PERIPHERAL [None]
  - PRURITUS GENERALISED [None]
  - VOMITING [None]
